FAERS Safety Report 9404719 (Version 2)
Quarter: 2013Q3

REPORT INFORMATION
  Report Type: Spontaneous
  Country: NO (occurrence: NO)
  Receive Date: 20130717
  Receipt Date: 20130920
  Transmission Date: 20140515
  Serious: Yes (Other)
  Sender: FDA-Public Use
  Company Number: PHHY2013NO074158

PATIENT
  Age: 86 Year
  Sex: Female

DRUGS (6)
  1. ZOMETA [Suspect]
     Indication: METASTASES TO BONE
     Dosage: 4 MG, Q3MO
     Route: 040
     Dates: start: 20090511, end: 20130226
  2. MAREVAN [Concomitant]
     Indication: ATRIAL FIBRILLATION
     Dosage: 9 TABLETS A WEEK
     Route: 048
  3. TENORMIN [Concomitant]
     Indication: ATRIAL FIBRILLATION
     Dosage: 50 MG, QD
     Route: 048
  4. CALCIGRAN FORTE [Concomitant]
     Indication: MINERAL SUPPLEMENTATION
     Dosage: UNK UKN, UNK
  5. PARACET [Concomitant]
     Indication: ANALGESIC THERAPY
     Dosage: 1 G, UNK
     Route: 048
  6. NOBLIGAN [Concomitant]
     Indication: ANALGESIC THERAPY
     Dosage: 50 MG, AS NECESSARY
     Route: 048

REACTIONS (2)
  - Osteonecrosis of jaw [Recovering/Resolving]
  - Exposed bone in jaw [Recovering/Resolving]
